FAERS Safety Report 10611718 (Version 3)
Quarter: 2014Q4

REPORT INFORMATION
  Report Type: Report from Study
  Country: US (occurrence: US)
  Receive Date: 20141126
  Receipt Date: 20141210
  Transmission Date: 20150529
  Serious: Yes (Life-Threatening, Hospitalization, Other)
  Sender: FDA-Public Use
  Company Number: US-TAKEDA-2014MPI003124

PATIENT
  Age: 6 Year
  Sex: Male
  Weight: 16.9 kg

DRUGS (8)
  1. VELCADE [Suspect]
     Active Substance: BORTEZOMIB
     Dosage: 1.3 MG/M2/DOSE, OVER 3-5 SECONDS ON DAYS 1, 4 AND 8
     Route: 042
     Dates: start: 20141110, end: 20141118
  2. MITOXANTRONE HYDROCHLORIDE. [Suspect]
     Active Substance: MITOXANTRONE HYDROCHLORIDE
     Indication: ACUTE MYELOID LEUKAEMIA
     Dosage: 12 MG/M2/DOSE OR 0.4 MG/KG/DOSE (IF BSA { 0.6 M2), OVER 15-30 MINUTES ON DAYS 3-6
     Route: 042
     Dates: start: 20140806
  3. CYTARABINE. [Suspect]
     Active Substance: CYTARABINE
     Dosage: 1000 MG/M2/DOSE OR 33 MG/KG/DOSE (IF BSA { 0.6 M2) INTRAVENOUS BID OVER 1-3 HOURS ON DAYS 1-5
     Route: 042
     Dates: start: 20141110, end: 20141115
  4. CYTARABINE. [Suspect]
     Active Substance: CYTARABINE
     Indication: ACUTE MYELOID LEUKAEMIA
     Dosage: 20-70MG (AGE BASED DOSING), ON DAY 1
     Route: 037
     Dates: start: 20140806
  5. CYTARABINE. [Suspect]
     Active Substance: CYTARABINE
     Dosage: 20-70 MG (AGE BASED DOSING), ON DAY 1
     Route: 037
     Dates: start: 20141110
  6. CYTARABINE. [Suspect]
     Active Substance: CYTARABINE
     Dosage: 1000 MG/M2/DOSE OR 33 MG/KG/DOSE (IF BSA { 0.6 M2) INTRAVENOUS BID OVER 1-3 HOURS ON DAYS 1-4
     Route: 042
     Dates: start: 20140806
  7. VELCADE [Suspect]
     Active Substance: BORTEZOMIB
     Indication: ACUTE MYELOID LEUKAEMIA
     Dosage: 1.3 MG/M2/DOSE, OVER 3-5 SECONDS ON DAYS 1, 4 AND 8
     Route: 042
     Dates: start: 20140806
  8. ETOPOSIDE. [Suspect]
     Active Substance: ETOPOSIDE
     Indication: ACUTE MYELOID LEUKAEMIA
     Dosage: 150 MG/M2/DOSE OR 5 MG/KG/DOSE (IF BSA { 0.6M2), OVER 60-120 MINUTES ON DAYS 1-5
     Route: 042
     Dates: start: 20141110, end: 20141114

REACTIONS (6)
  - Sinus tachycardia [Recovering/Resolving]
  - Hypocalcaemia [Recovering/Resolving]
  - Respiratory failure [Recovering/Resolving]
  - Hypotension [Recovering/Resolving]
  - Colitis [Recovering/Resolving]
  - Hypoxia [Recovering/Resolving]

NARRATIVE: CASE EVENT DATE: 20141122
